FAERS Safety Report 6696183-3 (Version None)
Quarter: 2010Q2

REPORT INFORMATION
  Report Type: 
  Country: None (occurrence: None)
  Receive Date: 20100426
  Receipt Date: 20100325
  Transmission Date: 20101027
  Serious: No
  Sender: FDA-Public Use
  Company Number: US-BAYER-201013635BCC

PATIENT
  Age: 86 Year
  Sex: Female
  Weight: 77 kg

DRUGS (4)
  1. ALEVE [Suspect]
     Indication: ARTHRALGIA
     Dosage: TOTAL DAILY DOSE: 220 MG  UNIT DOSE: 220 MG
     Route: 048
     Dates: start: 20100301
  2. ACTIVE PLUS VITAMIN SUPPLEMENT [Concomitant]
     Route: 065
  3. PLAVIX [Concomitant]
     Route: 065
  4. TENORMIN [Concomitant]
     Route: 065

REACTIONS (1)
  - INSOMNIA [None]
